FAERS Safety Report 23105591 (Version 2)
Quarter: 2023Q4

REPORT INFORMATION
  Report Type: Report from Study
  Country: US (occurrence: US)
  Receive Date: 20231025
  Receipt Date: 20231026
  Transmission Date: 20240109
  Serious: Yes (Other)
  Sender: FDA-Public Use
  Company Number: US-ABBVIE-5460131

PATIENT
  Age: 80 Year
  Sex: Male
  Weight: 88.45 kg

DRUGS (4)
  1. CREON [Suspect]
     Active Substance: PANCRELIPASE AMYLASE\PANCRELIPASE LIPASE\PANCRELIPASE PROTEASE
     Indication: Pancreatitis chronic
     Dosage: MINIMUM OF 6 TABLETS EVERYDAY, 2 TO 3 TABLETS WITH MEALS AND 1 WITH SNACK?FORM STRENGTH: 36000 UNIT
     Route: 048
     Dates: start: 202210
  2. LOSARTAN [Concomitant]
     Active Substance: LOSARTAN
     Indication: Cardiac disorder
  3. METFORMIN [Concomitant]
     Active Substance: METFORMIN HYDROCHLORIDE
     Indication: Diabetes mellitus
     Dosage: 500 MILLIGRAM
  4. GLIMEPIRIDE [Concomitant]
     Active Substance: GLIMEPIRIDE
     Indication: Diabetes mellitus
     Dosage: 4 MILLIGRAM

REACTIONS (2)
  - Pancreatolithiasis [Recovered/Resolved]
  - Pancreatic leak [Recovering/Resolving]

NARRATIVE: CASE EVENT DATE: 20230324
